FAERS Safety Report 17860168 (Version 1)
Quarter: 2020Q2

REPORT INFORMATION
  Report Type: Spontaneous
  Country: FR (occurrence: FR)
  Receive Date: 20200604
  Receipt Date: 20200604
  Transmission Date: 20200714
  Serious: Yes (Other)
  Sender: FDA-Public Use
  Company Number: PHHY2019FR034404

PATIENT
  Age: 45 Year
  Sex: Male

DRUGS (3)
  1. PRITOR [Concomitant]
     Indication: HYPERTENSION
     Dosage: 80 MG, QD
     Route: 065
  2. TERBINAFINE. [Suspect]
     Active Substance: TERBINAFINE
     Indication: DERMATOPHYTOSIS OF NAIL
     Dosage: 250 MG, QD
     Route: 048
     Dates: start: 201808, end: 201812
  3. TERBINAFINE. [Suspect]
     Active Substance: TERBINAFINE
     Dosage: 250 MG, QD (250 MG PER DAY (IN THE MORNING))
     Route: 048
     Dates: start: 20180820, end: 20181214

REACTIONS (2)
  - Asthenia [Recovered/Resolved]
  - Hypertension [Recovered/Resolved]

NARRATIVE: CASE EVENT DATE: 201809
